FAERS Safety Report 5328164-6 (Version None)
Quarter: 2007Q2

REPORT INFORMATION
  Report Type: 
  Country: None (occurrence: None)
  Receive Date: 20070514
  Receipt Date: 20070320
  Transmission Date: 20071010
  Serious: Yes (Hospitalization)
  Sender: FDA-Public Use
  Company Number: 2007000505

PATIENT
  Age: 52 Year
  Sex: Female

DRUGS (2)
  1. TARCEVA [Suspect]
     Indication: LUNG NEOPLASM MALIGNANT
     Dosage: 100 MG (QD), ORAL
     Route: 048
     Dates: start: 20070130
  2. CYCLINE NOS [Suspect]

REACTIONS (3)
  - CYTOLYTIC HEPATITIS [None]
  - DIARRHOEA [None]
  - SEBORRHOEIC DERMATITIS [None]
